FAERS Safety Report 23371042 (Version 2)
Quarter: 2024Q1

REPORT INFORMATION
  Report Type: Spontaneous
  Country: US (occurrence: US)
  Receive Date: 20240105
  Receipt Date: 20240305
  Transmission Date: 20240410
  Serious: No
  Sender: FDA-Public Use
  Company Number: US-SA-SAC20240102001011

PATIENT
  Age: 83 Year
  Sex: Female

DRUGS (1)
  1. DUPIXENT [Suspect]
     Active Substance: DUPILUMAB
     Indication: Transient acantholytic dermatosis
     Dosage: DOSE OR AMOUNT: 300MG FREQUENCY: EVERY 2 WEEKS
     Route: 058

REACTIONS (2)
  - Skin papilloma [Unknown]
  - Off label use [Unknown]
